FAERS Safety Report 4264431-5 (Version None)
Quarter: 2004Q1

REPORT INFORMATION
  Report Type: 
  Country: None (occurrence: None)
  Receive Date: 20040106
  Receipt Date: 20031126
  Transmission Date: 20041129
  Serious: Yes (Death)
  Sender: FDA-Public Use
  Company Number: US-GLAXOSMITHKLINE-B0316261A

PATIENT
  Age: 37 Year
  Sex: Male

DRUGS (3)
  1. WELLBUTRIN [Suspect]
     Indication: DEPRESSION
     Route: 048
  2. CARBAMAZEPINE [Concomitant]
  3. THIORIDAZINE [Concomitant]

REACTIONS (2)
  - COMPLETED SUICIDE [None]
  - INTENTIONAL OVERDOSE [None]
